FAERS Safety Report 11748777 (Version 1)
Quarter: 2015Q4

REPORT INFORMATION
  Report Type: Report from Study
  Country: CA (occurrence: CA)
  Receive Date: 20151118
  Receipt Date: 20151118
  Transmission Date: 20160304
  Serious: Yes (Other)
  Sender: FDA-Public Use
  Company Number: CA-ROCHE-ITM201412IM008001

PATIENT
  Sex: Male

DRUGS (12)
  1. DIAMICRON [Concomitant]
     Active Substance: GLICLAZIDE
  2. ROSUVASTATIN [Concomitant]
     Active Substance: ROSUVASTATIN
  3. ESBRIET [Suspect]
     Active Substance: PIRFENIDONE
     Dosage: 534-534-801 MG
     Route: 048
     Dates: start: 20150218, end: 201510
  4. VITAMIN B12 [Concomitant]
     Active Substance: CYANOCOBALAMIN
  5. METFORMIN [Concomitant]
     Active Substance: METFORMIN HYDROCHLORIDE
     Route: 065
  6. ESBRIET [Suspect]
     Active Substance: PIRFENIDONE
     Dosage: ON 08/DEC/2015
     Route: 048
  7. ESBRIET [Suspect]
     Active Substance: PIRFENIDONE
     Route: 048
     Dates: start: 20150209
  8. TECTA [Concomitant]
     Active Substance: PANTOPRAZOLE MAGNESIUM
  9. ESBRIET [Suspect]
     Active Substance: PIRFENIDONE
     Indication: IDIOPATHIC PULMONARY FIBROSIS
     Dosage: ON 24/NOV/2014, HE STARTED PIRFENIDONE
     Route: 048
  10. ESBRIET [Suspect]
     Active Substance: PIRFENIDONE
     Dosage: ON 01/DEC/2014
     Route: 048
  11. ESBRIET [Suspect]
     Active Substance: PIRFENIDONE
     Route: 048
     Dates: start: 20150217
  12. ASA [Concomitant]
     Active Substance: ASPIRIN
     Route: 065

REACTIONS (10)
  - Depression [Unknown]
  - Chest pain [Unknown]
  - Fatigue [Unknown]
  - Dysgeusia [Unknown]
  - Cough [Unknown]
  - Drug ineffective [Unknown]
  - Nausea [Unknown]
  - Decreased appetite [Unknown]
  - Headache [Unknown]
  - Weight decreased [Unknown]
